FAERS Safety Report 19780144 (Version 3)
Quarter: 2021Q4

REPORT INFORMATION
  Report Type: Report from Study
  Country: US (occurrence: US)
  Receive Date: 20210902
  Receipt Date: 20211224
  Transmission Date: 20220303
  Serious: No
  Sender: FDA-Public Use
  Company Number: NVSC2021US198391

PATIENT
  Sex: Female

DRUGS (1)
  1. COSENTYX [Suspect]
     Active Substance: SECUKINUMAB
     Indication: Ankylosing spondylitis
     Dosage: 150 MG, (BENEATH THE SKIN USUALLY VIA INJECTION)
     Route: 058

REACTIONS (3)
  - Injection site pruritus [Unknown]
  - Injection site pain [Unknown]
  - Breakthrough pain [Recovering/Resolving]
